FAERS Safety Report 13769398 (Version 1)
Quarter: 2017Q3

REPORT INFORMATION
  Report Type: Spontaneous
  Country: US (occurrence: US)
  Receive Date: 20170719
  Receipt Date: 20170719
  Transmission Date: 20171127
  Serious: No
  Sender: FDA-Public Use
  Company Number: US-BAUSCH-BL-2016-030407

PATIENT
  Age: 69 Year
  Sex: Female
  Weight: 52.21 kg

DRUGS (4)
  1. ASPIRIN. [Concomitant]
     Active Substance: ASPIRIN
     Indication: COAGULOPATHY
  2. XIFAXAN [Suspect]
     Active Substance: RIFAXIMIN
     Indication: GASTROINTESTINAL BACTERIAL OVERGROWTH
     Route: 048
     Dates: start: 20161121
  3. XIFAXAN [Suspect]
     Active Substance: RIFAXIMIN
     Dosage: HALF TABLET THREE TIMES DAILY
     Route: 048
     Dates: start: 20161124, end: 20161126
  4. BIOTIN [Concomitant]
     Active Substance: BIOTIN
     Indication: VITAMIN SUPPLEMENTATION

REACTIONS (5)
  - Off label use [Unknown]
  - Arthralgia [Recovered/Resolved]
  - Influenza [Recovered/Resolved]
  - Myalgia [Recovered/Resolved]
  - Drug administration error [Unknown]

NARRATIVE: CASE EVENT DATE: 201611
